FAERS Safety Report 5571596-1 (Version None)
Quarter: 2007Q4

REPORT INFORMATION
  Report Type: 
  Country: None (occurrence: None)
  Receive Date: 20071221
  Receipt Date: 20071214
  Transmission Date: 20080405
  Serious: Yes (Hospitalization)
  Sender: FDA-Public Use
  Company Number: US-ABBOTT-07P-163-0430546-00

PATIENT
  Age: 46 Year
  Sex: Male

DRUGS (5)
  1. NORVIR [Suspect]
     Indication: HIV INFECTION
     Route: 048
  2. NORVIR [Suspect]
     Dosage: 500MG/200MG (UNIT DOSE)
     Route: 048
  3. APTIVUS [Suspect]
     Indication: HIV INFECTION
     Route: 048
  4. EMTRICITABINE [Concomitant]
     Indication: DRUG USE FOR UNKNOWN INDICATION
  5. RITONAVIR [Concomitant]
     Indication: DRUG USE FOR UNKNOWN INDICATION
     Route: 048

REACTIONS (1)
  - ATRIAL FIBRILLATION [None]
